FAERS Safety Report 18329971 (Version 10)
Quarter: 2021Q2

REPORT INFORMATION
  Report Type: Spontaneous
  Country: US (occurrence: US)
  Receive Date: 20200930
  Receipt Date: 20210506
  Transmission Date: 20210717
  Serious: Yes (Hospitalization, Other)
  Sender: FDA-Public Use
  Company Number: US-SA-2020SA265201

PATIENT
  Age: 77 Year
  Sex: Female

DRUGS (48)
  1. FISH OIL [Concomitant]
     Active Substance: FISH OIL
  2. TYLENOL [Concomitant]
     Active Substance: ACETAMINOPHEN
     Dosage: UNK
     Route: 065
  3. TRAMADOL HYDROCHLORIDE. [Concomitant]
     Active Substance: TRAMADOL HYDROCHLORIDE
     Route: 065
  4. AMITIZA [Concomitant]
     Active Substance: LUBIPROSTONE
     Route: 065
  5. SINGULAIR [Concomitant]
     Active Substance: MONTELUKAST SODIUM
  6. MAGNESIUM [Concomitant]
     Active Substance: MAGNESIUM
  7. ZOFRAN [Concomitant]
     Active Substance: ONDANSETRON HYDROCHLORIDE
     Route: 065
  8. QVAR [Concomitant]
     Active Substance: BECLOMETHASONE DIPROPIONATE
  9. CLARITIN?D NOS [Concomitant]
     Active Substance: LORATADINE\PSEUDOEPHEDRINE SULFATE
     Route: 065
  10. PREDNISONE. [Concomitant]
     Active Substance: PREDNISONE
     Route: 065
  11. LACTULOSE. [Concomitant]
     Active Substance: LACTULOSE
     Dosage: UNK
     Route: 065
  12. CORTIZONE 10 [Concomitant]
     Active Substance: HYDROCORTISONE
  13. ALBUTEROL SULFATE. [Concomitant]
     Active Substance: ALBUTEROL SULFATE
  14. PROBIOTIC 10 [Concomitant]
     Active Substance: DIETARY SUPPLEMENT\PROBIOTICS
  15. AMITRIPTYLINE HCL [Concomitant]
     Active Substance: AMITRIPTYLINE
     Dosage: UNK
     Route: 065
  16. VITAMIN D3 [Concomitant]
     Active Substance: CHOLECALCIFEROL
  17. NASAFLO NETI POT [SODIUM BICARBONATE] [Concomitant]
     Route: 065
  18. PROGESTERONE. [Concomitant]
     Active Substance: PROGESTERONE
  19. SYNTHROID [Concomitant]
     Active Substance: LEVOTHYROXINE SODIUM
  20. SENNA PLUS [SENNA ALEXANDRINA] [Concomitant]
  21. MAGNESIUM OXIDE. [Concomitant]
     Active Substance: MAGNESIUM OXIDE
     Route: 065
  22. SENNA LAXATIVE [Concomitant]
     Active Substance: SENNOSIDES
     Route: 065
  23. FOLIC ACID. [Concomitant]
     Active Substance: FOLIC ACID
     Route: 065
  24. ABILIFY [Concomitant]
     Active Substance: ARIPIPRAZOLE
  25. DULCOLAX STOOL SOFTENER [Concomitant]
     Active Substance: DOCUSATE SODIUM
  26. EFFEXOR XR [Concomitant]
     Active Substance: VENLAFAXINE HYDROCHLORIDE
  27. LOPERAMIDE [Concomitant]
     Active Substance: LOPERAMIDE
  28. OMEPRAZOLE. [Concomitant]
     Active Substance: OMEPRAZOLE
  29. VITAMINS NOS [Concomitant]
     Active Substance: VITAMINS
  30. DUPIXENT [Suspect]
     Active Substance: DUPILUMAB
     Indication: DERMATITIS ATOPIC
     Dosage: 300 MG, QOW
     Route: 058
     Dates: start: 20200821
  31. OFEV [Concomitant]
     Active Substance: NINTEDANIB
  32. CHLORASEPTIC SORE THROAT [Concomitant]
     Active Substance: PHENOL
  33. DUPIXENT [Suspect]
     Active Substance: DUPILUMAB
     Indication: ASTHMA
  34. VITAMIN C [Concomitant]
     Active Substance: ASCORBIC ACID
  35. MUCINEX [Concomitant]
     Active Substance: GUAIFENESIN
     Dosage: UNK, Q12H
  36. COCONUT OIL [Concomitant]
     Active Substance: COCONUT OIL
     Route: 065
  37. CLONAZEPAM. [Concomitant]
     Active Substance: CLONAZEPAM
  38. LASIX [Concomitant]
     Active Substance: FUROSEMIDE
     Dosage: UNK
     Route: 065
  39. VITAMIN B COMPLEX [Concomitant]
     Active Substance: CYANOCOBALAMIN\DEXPANTHENOL\NIACINAMIDE\PYRIDOXINE HYDROCHLORIDE\RIBOFLAVIN 5^-PHOSPHATE SODIUM\THIAMINE HYDROCHLORIDE\VITAMIN B COMPLEX
  40. ZINC. [Concomitant]
     Active Substance: ZINC
  41. PRESERVISION AREDS [Concomitant]
     Active Substance: MINERALS\VITAMINS
  42. MISOPROSTOL. [Concomitant]
     Active Substance: MISOPROSTOL
     Route: 065
  43. MELOXICAM. [Concomitant]
     Active Substance: MELOXICAM
     Route: 065
  44. DILAUDID [Concomitant]
     Active Substance: HYDROMORPHONE HYDROCHLORIDE
  45. ESTRADIOL. [Concomitant]
     Active Substance: ESTRADIOL
  46. LEXAPRO [Concomitant]
     Active Substance: ESCITALOPRAM OXALATE
  47. OXYGEN. [Concomitant]
     Active Substance: OXYGEN
  48. ALEVE [Concomitant]
     Active Substance: NAPROXEN SODIUM

REACTIONS (27)
  - Cough [Not Recovered/Not Resolved]
  - Insomnia [Unknown]
  - Injection site erythema [Recovering/Resolving]
  - Fatigue [Unknown]
  - Sinus congestion [Unknown]
  - Pruritus [Unknown]
  - Fall [Not Recovered/Not Resolved]
  - Rib fracture [Not Recovered/Not Resolved]
  - Fear of death [Not Recovered/Not Resolved]
  - Gait disturbance [Not Recovered/Not Resolved]
  - Pain [Unknown]
  - Suicidal ideation [Unknown]
  - Bronchitis [Not Recovered/Not Resolved]
  - Dyspnoea [Not Recovered/Not Resolved]
  - Speech disorder [Not Recovered/Not Resolved]
  - Neck pain [Recovering/Resolving]
  - Upper limb fracture [Not Recovered/Not Resolved]
  - Decreased appetite [Unknown]
  - Nausea [Unknown]
  - Hypersomnia [Not Recovered/Not Resolved]
  - Thought blocking [Not Recovered/Not Resolved]
  - Skin infection [Unknown]
  - Therapeutic response shortened [Unknown]
  - Facial bones fracture [Not Recovered/Not Resolved]
  - Pain [Unknown]
  - Rash [Unknown]
  - Contusion [Unknown]

NARRATIVE: CASE EVENT DATE: 2020
